FAERS Safety Report 9016693 (Version 2)
Quarter: 2013Q1

REPORT INFORMATION
  Report Type: Spontaneous
  Country: US (occurrence: US)
  Receive Date: 20130116
  Receipt Date: 20130206
  Transmission Date: 20140127
  Serious: No
  Sender: FDA-Public Use
  Company Number: US-PFIZER INC-2013014195

PATIENT
  Age: 42 Year
  Sex: Female
  Weight: 81.18 kg

DRUGS (2)
  1. ZITHROMAX [Suspect]
     Indication: URETHRITIS
     Dosage: 250 MG, UNK
     Route: 048
     Dates: start: 20130108, end: 20130109
  2. ZOFRAN [Suspect]
     Indication: VOMITING
     Dosage: 4 MG, DAILY
     Dates: start: 20130109, end: 20130109

REACTIONS (4)
  - Vomiting [Recovered/Resolved]
  - Pain [Recovered/Resolved]
  - Abdominal pain upper [Not Recovered/Not Resolved]
  - Muscle spasms [Not Recovered/Not Resolved]
